FAERS Safety Report 5894694-1 (Version None)
Quarter: 2008Q3

REPORT INFORMATION
  Report Type: 
  Country: None (occurrence: None)
  Receive Date: 20080924
  Receipt Date: 20080507
  Transmission Date: 20090109
  Serious: No
  Sender: FDA-Public Use
  Company Number: US-ASTRAZENECA-2008UW09333

PATIENT
  Age: 37 Year
  Sex: Female
  Weight: 75 kg

DRUGS (2)
  1. SEROQUEL [Suspect]
     Indication: AFFECTIVE DISORDER
     Route: 048
  2. DEPAKOTE [Suspect]
     Indication: AFFECTIVE DISORDER
     Route: 048
     Dates: start: 20070101, end: 20070401

REACTIONS (3)
  - FATIGUE [None]
  - MUSCULOSKELETAL STIFFNESS [None]
  - TREMOR [None]
